FAERS Safety Report 24934935 (Version 1)
Quarter: 2025Q1

REPORT INFORMATION
  Report Type: Spontaneous
  Country: CA (occurrence: CA)
  Receive Date: 20250206
  Receipt Date: 20250206
  Transmission Date: 20250409
  Serious: Yes (Other)
  Sender: TEVA
  Company Number: CA-TEVA-VS-3295096

PATIENT
  Age: 40 Year
  Sex: Female

DRUGS (1)
  1. QUETIAPINE FUMARATE [Suspect]
     Active Substance: QUETIAPINE FUMARATE
     Indication: Product used for unknown indication
     Route: 048

REACTIONS (7)
  - Abnormal behaviour [Unknown]
  - Intentional product misuse [Unknown]
  - Substance-induced psychotic disorder [Unknown]
  - Anger [Unknown]
  - Intentional product misuse to child [Unknown]
  - Drug abuse [Unknown]
  - Amnesia [Unknown]
